FAERS Safety Report 16400741 (Version 1)
Quarter: 2019Q2

REPORT INFORMATION
  Report Type: Spontaneous
  Country: US (occurrence: US)
  Receive Date: 20190606
  Receipt Date: 20190606
  Transmission Date: 20190711
  Serious: No
  Sender: FDA-Public Use
  Company Number: US-PERNIX THERAPEUTICS-US-2019PER000024

PATIENT
  Sex: Female

DRUGS (1)
  1. TREXIMET [Suspect]
     Active Substance: NAPROXEN SODIUM\SUMATRIPTAN SUCCINATE
     Indication: MIGRAINE
     Dosage: 85/500 MG
     Route: 048
     Dates: start: 2009

REACTIONS (2)
  - Abdominal pain upper [Not Recovered/Not Resolved]
  - Nausea [Not Recovered/Not Resolved]
